FAERS Safety Report 6008516-1 (Version None)
Quarter: 2008Q4

REPORT INFORMATION
  Report Type: 
  Country: None (occurrence: None)
  Receive Date: 20081217
  Receipt Date: 20081210
  Transmission Date: 20090506
  Serious: Yes (Hospitalization)
  Sender: FDA-Public Use
  Company Number: CA-ELI_LILLY_AND_COMPANY-CA200812002798

PATIENT
  Age: 59 Year
  Sex: Male

DRUGS (5)
  1. ZYPREXA ZYDIS [Suspect]
     Dosage: 5 MG, DAILY (1/D)
     Route: 048
     Dates: start: 20060101
  2. GABAPENTIN [Concomitant]
     Indication: NEUROPATHY PERIPHERAL
  3. MEBENDAZOLE [Concomitant]
     Indication: INFECTION PARASITIC
  4. CINACALCET [Concomitant]
     Indication: BLOOD THYROID STIMULATING HORMONE INCREASED
  5. SEVELAMER [Concomitant]
     Indication: BLOOD PHOSPHORUS

REACTIONS (1)
  - VENTRICULAR TACHYCARDIA [None]
